FAERS Safety Report 21738638 (Version 2)
Quarter: 2023Q1

REPORT INFORMATION
  Report Type: Spontaneous
  Country: US (occurrence: US)
  Receive Date: 20221216
  Receipt Date: 20230118
  Transmission Date: 20230417
  Serious: Yes (Other)
  Sender: FDA-Public Use
  Company Number: US-UROGEN PHARMA LTD.-2022-UGN-000119

PATIENT

DRUGS (6)
  1. JELMYTO [Suspect]
     Active Substance: MITOMYCIN
     Indication: Transitional cell cancer of the renal pelvis and ureter
     Dosage: ONE TIME PER WEEK (INSTILLATION)
     Dates: start: 20220830, end: 20220830
  2. JELMYTO [Suspect]
     Active Substance: MITOMYCIN
     Dosage: ONE TIME PER WEEK (INSTILLATION)
     Dates: start: 20220906, end: 20220906
  3. JELMYTO [Suspect]
     Active Substance: MITOMYCIN
     Dosage: ONE TIME PER WEEK (INSTILLATION)
     Dates: start: 20220913, end: 20220913
  4. JELMYTO [Suspect]
     Active Substance: MITOMYCIN
     Dosage: ONE TIME PER WEEK (INSTILLATION)
     Dates: start: 20220920, end: 20220920
  5. JELMYTO [Suspect]
     Active Substance: MITOMYCIN
     Dosage: ONE TIME PER WEEK (INSTILLATION)
     Dates: start: 20220927, end: 20220927
  6. JELMYTO [Suspect]
     Active Substance: MITOMYCIN
     Dosage: ONE TIME PER WEEK (INSTILLATION)
     Dates: start: 20221004, end: 20221004

REACTIONS (9)
  - Hydronephrosis [Not Recovered/Not Resolved]
  - Muscle spasms [Recovered/Resolved]
  - Muscle spasms [Recovered/Resolved]
  - Muscle spasms [Recovered/Resolved]
  - Muscle spasms [Recovered/Resolved]
  - Muscle spasms [Recovered/Resolved]
  - Muscle spasms [Not Recovered/Not Resolved]
  - Post procedural complication [Not Recovered/Not Resolved]
  - Post procedural discomfort [Not Recovered/Not Resolved]

NARRATIVE: CASE EVENT DATE: 20220101
